FAERS Safety Report 9154808 (Version 2)
Quarter: 2013Q1

REPORT INFORMATION
  Report Type: Report from Study
  Country: US (occurrence: US)
  Receive Date: 20130311
  Receipt Date: 20130321
  Transmission Date: 20140127
  Serious: Yes (Hospitalization, Other)
  Sender: FDA-Public Use
  Company Number: US-BAYER-2013-030403

PATIENT
  Age: 67 Year
  Sex: Male
  Weight: 80.73 kg

DRUGS (24)
  1. SORAFENIB (RAF KINASE INHIBITOR) [Suspect]
     Indication: PANCREATIC CARCINOMA METASTATIC
     Dosage: 400 MG, BID
     Route: 048
     Dates: start: 20110527, end: 20110616
  2. SORAFENIB (RAF KINASE INHIBITOR) [Suspect]
     Indication: PANCREATIC CARCINOMA METASTATIC
     Dosage: 400 MG, QD
     Route: 048
     Dates: start: 20110617, end: 20110624
  3. EVEROLIMUS [Suspect]
     Indication: PANCREATIC CARCINOMA METASTATIC
     Dosage: 5 MG, QD
     Route: 048
     Dates: start: 20110603, end: 20110624
  4. TAMSULOSIN [Concomitant]
     Dosage: 0.4 MG, QD
     Route: 048
     Dates: start: 201001
  5. OMEPRAZOLE [Concomitant]
     Indication: GASTROOESOPHAGEAL REFLUX DISEASE
     Dosage: 40 MG, PRN
     Route: 048
     Dates: start: 2002
  6. OXYBUTYNIN [Concomitant]
     Indication: DYSURIA
     Dosage: 5 MG, QD
     Route: 048
     Dates: start: 201111
  7. CREON [PANCREATIN] [Concomitant]
     Indication: PANCREATIC INSUFFICIENCY
     Dosage: MEALS AND SNACKS
     Route: 048
     Dates: start: 2010
  8. BABY ASPIRIN [Concomitant]
     Indication: CARDIOVASCULAR EVENT PROPHYLAXIS
     Dosage: 81, QD
     Route: 048
     Dates: start: 2006
  9. FISH OIL [Concomitant]
     Indication: ROUTINE HEALTH MAINTENANCE
     Dosage: 2 DF, QD
     Route: 048
     Dates: start: 2008
  10. CALCIUM W/VITAMIN D NOS [Concomitant]
     Indication: ROUTINE HEALTH MAINTENANCE
     Dosage: UNK UNK, BID
     Route: 048
     Dates: start: 2008
  11. MULTIVITAMIN [Concomitant]
     Indication: ROUTINE HEALTH MAINTENANCE
     Dosage: UNK UNK, QD
     Route: 048
     Dates: start: 2008
  12. VITAMIN E [Concomitant]
     Indication: ROUTINE HEALTH MAINTENANCE
     Dosage: 400 U, QD
     Route: 048
     Dates: start: 2008
  13. ALEVE TABLET [Concomitant]
     Indication: PAIN
     Dosage: UNK
     Route: 048
     Dates: start: 201008
  14. ESTER C [Concomitant]
     Indication: ROUTINE HEALTH MAINTENANCE
     Dosage: 500 MG, UNK
     Route: 048
     Dates: start: 2006
  15. GLUCOSAMINE [Concomitant]
     Indication: PROPHYLAXIS
     Dosage: 1500 MG, QD
     Route: 048
     Dates: start: 2008
  16. ADVIL [Concomitant]
     Indication: ARTHRALGIA
     Dosage: 200 MG 2-3 TABS Q8 HRS, PRN
     Route: 048
     Dates: start: 201104
  17. ELMIRON [Concomitant]
     Indication: BLADDER PAIN
     Dosage: 200 MG, BID
     Route: 048
     Dates: start: 20110524
  18. SAW PALMETTO [Concomitant]
     Indication: ROUTINE HEALTH MAINTENANCE
     Dosage: UNK UNK, QD
     Route: 048
     Dates: start: 2008
  19. MIRALAX [Concomitant]
     Indication: CONSTIPATION
     Dosage: 17 G, PRN
     Route: 048
  20. TRAMADOL [Concomitant]
     Indication: FLANK PAIN
     Dosage: 50 MG 1-2 TABS Q 8HR, PRN
     Route: 048
     Dates: start: 20110610
  21. BACTRIM DS [Concomitant]
     Indication: URINARY TRACT INFECTION
     Dosage: UNK UNK, BID
     Route: 048
     Dates: start: 20110622
  22. CIPRO [Concomitant]
     Indication: URINARY TRACT INFECTION
     Dosage: 500 MG, BID
     Dates: start: 20110620, end: 20110621
  23. FLAGYL [Concomitant]
     Indication: URINARY TRACT INFECTION
     Dosage: 500 MG, TID
     Dates: start: 20110627
  24. CEFEPIME [Concomitant]
     Indication: URINARY TRACT INFECTION
     Dosage: UNK
     Dates: start: 20110625, end: 20110627

REACTIONS (1)
  - Enterovesical fistula [Not Recovered/Not Resolved]
